FAERS Safety Report 25043948 (Version 1)
Quarter: 2025Q1

REPORT INFORMATION
  Report Type: Spontaneous
  Country: US (occurrence: US)
  Receive Date: 20250306
  Receipt Date: 20250306
  Transmission Date: 20250409
  Serious: No
  Sender: BIOGEN
  Company Number: US-BIOGEN-2025BI01299950

PATIENT
  Sex: Female

DRUGS (13)
  1. VUMERITY [Suspect]
     Active Substance: DIROXIMEL FUMARATE
     Indication: Multiple sclerosis
     Route: 050
     Dates: start: 20250131
  2. CHLORPHENIRAMINE [Concomitant]
     Active Substance: CHLORPHENIRAMINE
     Route: 050
  3. CINNAMON [Concomitant]
     Active Substance: CINNAMON
     Route: 050
  4. PRASTERONE [Concomitant]
     Active Substance: PRASTERONE
     Route: 050
  5. ELIQUIS [Concomitant]
     Active Substance: APIXABAN
     Route: 050
  6. FEXOFENADINE [Concomitant]
     Active Substance: FEXOFENADINE HYDROCHLORIDE
     Route: 050
  7. FLUTICASONE [Concomitant]
     Active Substance: FLUTICASONE
     Route: 050
  8. GABAPENTIN [Concomitant]
     Active Substance: GABAPENTIN
     Route: 050
  9. GLIPIZIDE [Concomitant]
     Active Substance: GLIPIZIDE
     Route: 050
  10. MODAFINIL [Concomitant]
     Active Substance: MODAFINIL
     Route: 050
  11. TRESIBA [Concomitant]
     Active Substance: INSULIN DEGLUDEC
     Route: 050
  12. VALACYCLOVIR [Concomitant]
     Active Substance: VALACYCLOVIR HYDROCHLORIDE
     Route: 050
  13. VITAMIN D3 [Concomitant]
     Active Substance: CHOLECALCIFEROL
     Route: 050

REACTIONS (6)
  - Brain fog [Unknown]
  - Muscle spasms [Unknown]
  - Skin odour abnormal [Unknown]
  - Insomnia [Unknown]
  - Diarrhoea [Unknown]
  - Abdominal pain upper [Unknown]
